FAERS Safety Report 5423184-5 (Version None)
Quarter: 2007Q3

REPORT INFORMATION
  Report Type: 
  Country: None (occurrence: None)
  Receive Date: 20070730
  Receipt Date: 20070102
  Transmission Date: 20080115
  Serious: Yes (Other)
  Sender: FDA-Public Use
  Company Number: 200615700BWH

PATIENT
  Age: 25 Year
  Sex: Female
  Weight: 59.8748 kg

DRUGS (6)
  1. AVELOX [Suspect]
     Indication: BRONCHITIS
     Dosage: ORAL ; 400 MG, ONCE, ORAL
     Route: 048
     Dates: start: 20060101
  2. AVELOX [Suspect]
     Indication: EAR INFECTION
     Dosage: ORAL ; 400 MG, ONCE, ORAL
     Route: 048
     Dates: start: 20060101
  3. AVELOX [Suspect]
     Indication: BRONCHITIS
     Dosage: ORAL ; 400 MG, ONCE, ORAL
     Route: 048
     Dates: start: 20060919
  4. AVELOX [Suspect]
     Indication: EAR INFECTION
     Dosage: ORAL ; 400 MG, ONCE, ORAL
     Route: 048
     Dates: start: 20060919
  5. LIQUIBID [Concomitant]
  6. ZELNORM [Concomitant]

REACTIONS (8)
  - ANAPHYLACTIC REACTION [None]
  - ANAPHYLACTIC SHOCK [None]
  - DYSPNOEA [None]
  - HYPERTENSION [None]
  - LIP SWELLING [None]
  - OEDEMA PERIPHERAL [None]
  - RASH [None]
  - RESPIRATORY DISTRESS [None]
